FAERS Safety Report 9230510 (Version 1)
Quarter: 2013Q2

REPORT INFORMATION
  Report Type: Spontaneous
  Country: SE (occurrence: SE)
  Receive Date: 20130415
  Receipt Date: 20130415
  Transmission Date: 20140414
  Serious: Yes (Other)
  Sender: FDA-Public Use
  Company Number: SE-BAYER-2013-043561

PATIENT
  Age: 66 Year
  Sex: Male

DRUGS (2)
  1. CIPROFLOXACIN [Suspect]
     Dosage: UNK
     Dates: start: 20121026, end: 20121029
  2. TIENAM [Suspect]
     Dosage: UNK
     Dates: start: 20121016, end: 20121019

REACTIONS (4)
  - Rash erythematous [None]
  - Exfoliative rash [None]
  - Skin burning sensation [None]
  - Pruritus [None]
